FAERS Safety Report 13151795 (Version 4)
Quarter: 2017Q2

REPORT INFORMATION
  Report Type: Spontaneous
  Country: US (occurrence: US)
  Receive Date: 20170125
  Receipt Date: 20170418
  Transmission Date: 20170830
  Serious: Yes (Death, Hospitalization)
  Sender: FDA-Public Use
  Company Number: US-ACTELION-A-US2017-148910

PATIENT
  Age: 63 Year
  Sex: Female

DRUGS (4)
  1. ADEMPAS [Concomitant]
     Active Substance: RIOCIGUAT
     Dosage: 0.5 MG, TID
     Dates: start: 20170201, end: 20170203
  2. REMODULIN [Concomitant]
     Active Substance: TREPROSTINIL
     Dosage: 5 MG/ML UD
     Dates: start: 20100618, end: 20170203
  3. REMODULIN [Concomitant]
     Active Substance: TREPROSTINIL
     Dosage: 5 MG/ML, UNK
     Route: 042
     Dates: start: 20161019
  4. OPSUMIT [Suspect]
     Active Substance: MACITENTAN
     Indication: PULMONARY ARTERIAL HYPERTENSION
     Dosage: 10 MG, QD
     Route: 048
     Dates: start: 20140729, end: 20170203

REACTIONS (7)
  - Pulmonary hypertension [Fatal]
  - Tearfulness [Not Recovered/Not Resolved]
  - Mental status changes [Unknown]
  - Confusional state [Not Recovered/Not Resolved]
  - Treatment noncompliance [Unknown]
  - General physical health deterioration [Unknown]
  - Lethargy [Not Recovered/Not Resolved]

NARRATIVE: CASE EVENT DATE: 20170101
